FAERS Safety Report 23595041 (Version 1)
Quarter: 2024Q1

REPORT INFORMATION
  Report Type: Spontaneous
  Country: GB (occurrence: GB)
  Receive Date: 20240305
  Receipt Date: 20240305
  Transmission Date: 20240410
  Serious: Yes (Other)
  Sender: FDA-Public Use
  Company Number: GB-RECORDATI-2023008482

PATIENT

DRUGS (20)
  1. MORPHINE [Suspect]
     Active Substance: MORPHINE
     Indication: Product used for unknown indication
     Dosage: UNK, INFUSION
     Route: 065
     Dates: end: 202311
  2. ISOTRETINOIN [Suspect]
     Active Substance: ISOTRETINOIN
     Indication: Neuroblastoma
     Dosage: CYCLE 1
     Route: 065
     Dates: start: 20231002
  3. MORPHINE [Suspect]
     Active Substance: MORPHINE
     Indication: Analgesic therapy
     Dosage: 4MG EVERY 4 HOURS (PRN)
     Route: 048
     Dates: start: 20231101
  4. CEFTRIAXONE [Suspect]
     Active Substance: CEFTRIAXONE\CEFTRIAXONE SODIUM
     Indication: Product used for unknown indication
     Dosage: UNK
     Route: 065
     Dates: start: 20231106, end: 20231106
  5. DINUTUXIMAB BETA [Suspect]
     Active Substance: DINUTUXIMAB BETA
     Indication: Neuroblastoma
     Dosage: 8.74 MILLIGRAM; CYCLE1 DAY6
     Route: 042
     Dates: start: 20231106, end: 20231106
  6. DINUTUXIMAB BETA [Suspect]
     Active Substance: DINUTUXIMAB BETA
     Dosage: 8.74 MILLIGRAM; CYCLE1 DAY2
     Route: 042
     Dates: start: 20231102, end: 20231102
  7. DINUTUXIMAB BETA [Suspect]
     Active Substance: DINUTUXIMAB BETA
     Dosage: 8.74 MILLIGRAM; CYCLE1 DAY1
     Route: 042
     Dates: start: 20231101, end: 20231101
  8. DINUTUXIMAB BETA [Suspect]
     Active Substance: DINUTUXIMAB BETA
     Dosage: 8.74 MILLIGRAM; CYCLE1 DAY3
     Route: 042
     Dates: start: 20231103, end: 20231103
  9. DINUTUXIMAB BETA [Suspect]
     Active Substance: DINUTUXIMAB BETA
     Dosage: 8.74 MILLIGRAM; CYCLE1 DAY7
     Route: 042
     Dates: start: 20231107, end: 20231107
  10. DINUTUXIMAB BETA [Suspect]
     Active Substance: DINUTUXIMAB BETA
     Dosage: 8.74 MILLIGRAM; CYCLE1 DAY5
     Route: 042
     Dates: start: 20231105, end: 20231105
  11. DINUTUXIMAB BETA [Suspect]
     Active Substance: DINUTUXIMAB BETA
     Dosage: 8.74 MILLIGRAM; CYCLE1 DAY8
     Route: 042
     Dates: start: 20231108, end: 20231108
  12. DINUTUXIMAB BETA [Suspect]
     Active Substance: DINUTUXIMAB BETA
     Dosage: 8.74 MILLIGRAM; CYCLE1 DAY9
     Route: 042
     Dates: start: 20231109, end: 20231109
  13. DINUTUXIMAB BETA [Suspect]
     Active Substance: DINUTUXIMAB BETA
     Dosage: 8.74 MILLIGRAM; CYCLE1 DAY4
     Route: 042
     Dates: start: 20231104, end: 20231104
  14. DINUTUXIMAB BETA [Suspect]
     Active Substance: DINUTUXIMAB BETA
     Dosage: 8.74 MILLIGRAM; CYCLE1 DAY10
     Route: 042
     Dates: start: 20231110, end: 20231111
  15. CETIRIZINE [Concomitant]
     Active Substance: CETIRIZINE HYDROCHLORIDE
     Indication: Prophylaxis
     Dosage: 2.5 MILLIGRAM
     Route: 048
     Dates: start: 20231101
  16. CHLORPHENIRAMINE MALEATE [Concomitant]
     Active Substance: CHLORPHENIRAMINE MALEATE
     Indication: Antiallergic therapy
     Dosage: 1 MILLIGRAM, Q6H
     Route: 048
     Dates: start: 20231101
  17. COTRIMOXAZOLE [Concomitant]
     Active Substance: SULFAMETHOXAZOLE\TRIMETHOPRIM
     Indication: Antifungal treatment
     Dosage: 240 MILLIGRAM, TWICE A DAY ON SATURDAY AND SUNDAY
     Route: 048
     Dates: start: 20231104
  18. GABAPENTIN [Concomitant]
     Active Substance: GABAPENTIN
     Indication: Analgesic therapy
     Dosage: 223 MILLIGRAM, TID
     Route: 048
     Dates: start: 20231101
  19. ACETAMINOPHEN [Concomitant]
     Active Substance: ACETAMINOPHEN
     Indication: Analgesic therapy
     Dosage: 360 MILLIGRAM, Q6H
     Route: 048
     Dates: start: 20231101
  20. PIPERACILLIN SODIUM\TAZOBACTAM SODIUM [Concomitant]
     Active Substance: PIPERACILLIN SODIUM\TAZOBACTAM SODIUM
     Indication: Product used for unknown indication
     Dosage: UNK
     Route: 065
     Dates: start: 20231104

REACTIONS (3)
  - Hallucination, visual [Recovered/Resolved]
  - Pyrexia [Recovered/Resolved]
  - Pain [Recovered/Resolved]

NARRATIVE: CASE EVENT DATE: 20231102
